FAERS Safety Report 6328641-5 (Version None)
Quarter: 2009Q3

REPORT INFORMATION
  Report Type: 
  Country: None (occurrence: None)
  Receive Date: 20090826
  Receipt Date: 20090819
  Transmission Date: 20100115
  Serious: Yes (Death)
  Sender: FDA-Public Use
  Company Number: US-SOLVAY-00209004639

PATIENT
  Sex: Female

DRUGS (1)
  1. MARINOL [Suspect]
     Indication: DRUG USE FOR UNKNOWN INDICATION
     Dosage: DAILY DOSE:  UNKNOWN
     Route: 065

REACTIONS (3)
  - CONFUSIONAL STATE [None]
  - DEATH [None]
  - HALLUCINATION [None]
